FAERS Safety Report 9085007 (Version 1)
Quarter: 2013Q1

REPORT INFORMATION
  Report Type: Report from Study
  Country: US (occurrence: US)
  Receive Date: 20130131
  Receipt Date: 20130131
  Transmission Date: 20140127
  Serious: No
  Sender: FDA-Public Use
  Company Number: US-ABBOTT-12P-163-1014289-00

PATIENT
  Age: 49 Year
  Sex: Female

DRUGS (6)
  1. HUMIRA [Suspect]
     Indication: PSORIASIS
     Dates: start: 20121117
  2. HUMIRA [Suspect]
     Dates: start: 20121124
  3. I-THYROID [Concomitant]
     Indication: PRODUCT USED FOR UNKNOWN INDICATION
  4. DIETARY-TYPE SUPPLEMENT [Concomitant]
     Indication: THYROID DISORDER
  5. ESTROGEN CREAM [Concomitant]
     Indication: PRODUCT USED FOR UNKNOWN INDICATION
     Dosage: DAILY
  6. PROGESTERONE [Concomitant]
     Indication: PRODUCT USED FOR UNKNOWN INDICATION
     Dosage: DAILY

REACTIONS (1)
  - Hyperaesthesia [Recovering/Resolving]
